FAERS Safety Report 10101566 (Version 1)
Quarter: 2014Q2

REPORT INFORMATION
  Report Type: Spontaneous
  Country: US (occurrence: US)
  Receive Date: 20140424
  Receipt Date: 20140424
  Transmission Date: 20141212
  Serious: Yes (Hospitalization, Other)
  Sender: FDA-Public Use
  Company Number: US-ENDO PHARMACEUTICALS INC.-CLON20140007

PATIENT
  Age: 87 Year
  Sex: Female

DRUGS (6)
  1. CLONIDINE HCL TABLETS 0.2MG [Suspect]
     Indication: HYPERTENSION
     Route: 048
  2. HYDRALAZINE [Concomitant]
     Indication: HYPERTENSION
     Route: 048
  3. VERAPAMIL [Concomitant]
     Indication: HYPERTENSION
     Dosage: UNKNOWN
     Route: 048
  4. ANTIHYPERTENSIVES [Concomitant]
     Indication: HYPERTENSION
     Dosage: UNKNOWN
     Route: 048
  5. LANTUS [Concomitant]
     Indication: DIABETES MELLITUS
     Dosage: UNKNOWN
     Route: 065
  6. NOVOLOG [Concomitant]
     Indication: DIABETES MELLITUS
     Dosage: UNKNOWN
     Route: 065

REACTIONS (14)
  - Hospitalisation [Unknown]
  - Kidney infection [Recovered/Resolved]
  - Thrombosis [Unknown]
  - Dyspnoea [Not Recovered/Not Resolved]
  - Renal disorder [Not Recovered/Not Resolved]
  - Pyrexia [Recovered/Resolved]
  - Fall [Unknown]
  - Spinal fracture [Unknown]
  - Loss of consciousness [Unknown]
  - Delirium [Unknown]
  - Dizziness [Unknown]
  - Blood glucose increased [Unknown]
  - Blood pressure increased [Unknown]
  - Drug effect decreased [Unknown]
